FAERS Safety Report 5251330-5 (Version None)
Quarter: 2007Q1

REPORT INFORMATION
  Report Type: 
  Country: None (occurrence: None)
  Receive Date: 20070228
  Receipt Date: 20070222
  Transmission Date: 20070707
  Serious: Yes (Hospitalization)
  Sender: FDA-Public Use
  Company Number: 2007AP01270

PATIENT
  Age: 57 Year
  Sex: Male
  Weight: 64 kg

DRUGS (1)
  1. CASODEX [Suspect]
     Indication: PROSTATE CANCER
     Route: 048
     Dates: start: 20061030, end: 20070101

REACTIONS (2)
  - DECREASED APPETITE [None]
  - LIVER DISORDER [None]
